FAERS Safety Report 20661163 (Version 1)
Quarter: 2022Q1

REPORT INFORMATION
  Report Type: Spontaneous
  Country: CA (occurrence: CA)
  Receive Date: 20220331
  Receipt Date: 20220331
  Transmission Date: 20220423
  Serious: Yes (Hospitalization, Other)
  Sender: FDA-Public Use
  Company Number: CA-ACTELION-A-US2020-200602

PATIENT
  Age: 64 Year
  Sex: Female

DRUGS (24)
  1. UPTRAVI [Suspect]
     Active Substance: SELEXIPAG
     Indication: Pulmonary arterial hypertension
     Dosage: 200 MCG, BID
     Route: 048
     Dates: start: 20200106, end: 20200110
  2. ADCIRCA [Suspect]
     Active Substance: TADALAFIL
     Indication: Pulmonary arterial hypertension
     Dosage: 40 MG
     Route: 048
     Dates: start: 20140715
  3. AMBRISENTAN [Suspect]
     Active Substance: AMBRISENTAN
     Indication: Pulmonary arterial hypertension
     Dosage: UNK
     Route: 065
     Dates: start: 20200108
  4. HUMALOG [Suspect]
     Active Substance: INSULIN LISPRO
     Indication: Product used for unknown indication
     Route: 042
  5. XARELTO [Concomitant]
     Active Substance: RIVAROXABAN
  6. FUROSEMIDE [Concomitant]
     Active Substance: FUROSEMIDE
  7. LIPITOR [Concomitant]
     Active Substance: ATORVASTATIN CALCIUM
  8. INSULIN NOS [Concomitant]
     Active Substance: INSULIN NOS
  9. METOPROLOL [Concomitant]
     Active Substance: METOPROLOL
  10. PANTOPRAZOLE [Concomitant]
     Active Substance: PANTOPRAZOLE
  11. PREDNISONE [Concomitant]
     Active Substance: PREDNISONE
  12. POTASSIUM [Concomitant]
     Active Substance: POTASSIUM
  13. CALCIUM [Concomitant]
     Active Substance: CALCIUM
  14. VITAMIN D [Concomitant]
     Active Substance: VITAMIN D NOS
  15. ACLASTA [Concomitant]
     Active Substance: ZOLEDRONIC ACID
  16. ATOVAQUONE [Concomitant]
     Active Substance: ATOVAQUONE
  17. GAVISCON [Concomitant]
     Active Substance: ALUMINUM HYDROXIDE\MAGNESIUM CARBONATE
  18. TYLENOL [Concomitant]
     Active Substance: ACETAMINOPHEN
  19. LANTUS [Concomitant]
     Active Substance: INSULIN GLARGINE
  20. ALGINIC ACID [Concomitant]
     Active Substance: ALGINIC ACID
  21. ALUMINUM HYDROXIDE [Concomitant]
     Active Substance: ALUMINUM HYDROXIDE
  22. MAGNESIUM TRISILICATE [Concomitant]
     Active Substance: MAGNESIUM TRISILICATE
  23. SODIUM BICARBONATE [Concomitant]
     Active Substance: SODIUM BICARBONATE
  24. ACETAMINOPHEN [Concomitant]
     Active Substance: ACETAMINOPHEN

REACTIONS (14)
  - Depressed level of consciousness [Not Recovered/Not Resolved]
  - Cellulitis [Not Recovered/Not Resolved]
  - Localised infection [Not Recovered/Not Resolved]
  - Pyrexia [Not Recovered/Not Resolved]
  - Joint swelling [Not Recovered/Not Resolved]
  - Contusion [Not Recovered/Not Resolved]
  - Gait disturbance [Not Recovered/Not Resolved]
  - Vomiting [Not Recovered/Not Resolved]
  - Nausea [Not Recovered/Not Resolved]
  - Headache [Not Recovered/Not Resolved]
  - Pain [Not Recovered/Not Resolved]
  - Abdominal pain upper [Not Recovered/Not Resolved]
  - Diarrhoea [Not Recovered/Not Resolved]
  - Chest pain [Not Recovered/Not Resolved]

NARRATIVE: CASE EVENT DATE: 20200101
